FAERS Safety Report 8585064-6 (Version None)
Quarter: 2012Q3

REPORT INFORMATION
  Report Type: 
  Country: None (occurrence: None)
  Receive Date: 20120810
  Receipt Date: 20120802
  Transmission Date: 20120928
  Serious: Yes (Hospitalization, Other)
  Sender: FDA-Public Use
  Company Number: AU-CELGENEUS-008-50794-12080231

PATIENT
  Sex: Male

DRUGS (4)
  1. EVEROLIMUS [Suspect]
     Dosage: 10 MILLIGRAM
     Route: 065
     Dates: start: 20101224
  2. EVEROLIMUS [Suspect]
     Dosage: 2.5 MILLIGRAM
     Route: 065
  3. VIDAZA [Suspect]
     Dosage: 158 MILLIGRAM
     Route: 065
     Dates: start: 20120730, end: 20120802
  4. VIDAZA [Suspect]
     Dosage: 165 MILLIGRAM
     Route: 065
     Dates: start: 20101220

REACTIONS (4)
  - DIARRHOEA [None]
  - ATRIAL FLUTTER [None]
  - ABDOMINAL PAIN [None]
  - FEBRILE NEUTROPENIA [None]
